FAERS Safety Report 5927076-4 (Version None)
Quarter: 2008Q4

REPORT INFORMATION
  Report Type: 
  Country: None (occurrence: None)
  Receive Date: 20081022
  Receipt Date: 20081017
  Transmission Date: 20090506
  Serious: Yes (Other)
  Sender: FDA-Public Use
  Company Number: CA-WYE-G02373108

PATIENT
  Age: 45 Year
  Sex: Female

DRUGS (2)
  1. EFFEXOR XR [Suspect]
     Indication: ANXIETY
     Route: 048
     Dates: start: 20080701
  2. EFFEXOR XR [Suspect]
     Indication: MENOPAUSAL SYMPTOMS

REACTIONS (3)
  - EMOTIONAL DISTRESS [None]
  - FEAR [None]
  - SUICIDAL IDEATION [None]
